FAERS Safety Report 8506114-9 (Version None)
Quarter: 2012Q3

REPORT INFORMATION
  Report Type: 
  Country: None (occurrence: None)
  Receive Date: 20120712
  Receipt Date: 20120702
  Transmission Date: 20120928
  Serious: Yes (Hospitalization)
  Sender: FDA-Public Use
  Company Number: US-ALEXION-A201200871

PATIENT
  Sex: Female

DRUGS (1)
  1. SOLIRIS [Suspect]
     Indication: HAEMOLYTIC URAEMIC SYNDROME
     Dosage: UNK
     Route: 042

REACTIONS (9)
  - HYPERTENSION [None]
  - ENCEPHALOPATHY [None]
  - CLOSTRIDIUM DIFFICILE COLITIS [None]
  - CONVULSION [None]
  - HEART RATE INCREASED [None]
  - HEADACHE [None]
  - ADVERSE EVENT [None]
  - BLOOD GLUCOSE INCREASED [None]
  - NAUSEA [None]
